FAERS Safety Report 7636786-2 (Version None)
Quarter: 2011Q3

REPORT INFORMATION
  Report Type: 
  Country: None (occurrence: None)
  Receive Date: 20110722
  Receipt Date: 20110722
  Transmission Date: 20111222
  Serious: No
  Sender: FDA-Public Use
  Company Number: None

PATIENT
  Age: 93 Year
  Sex: Female
  Weight: 50.8029 kg

DRUGS (1)
  1. NAMENDA [Suspect]
     Dosage: 10 MG 2X/DAY
     Dates: start: 20110604, end: 20110708

REACTIONS (2)
  - MOVEMENT DISORDER [None]
  - FEELING ABNORMAL [None]
